FAERS Safety Report 7003688-4 (Version None)
Quarter: 2010Q3

REPORT INFORMATION
  Report Type: 
  Country: None (occurrence: None)
  Receive Date: 20100920
  Receipt Date: 20091221
  Transmission Date: 20110219
  Serious: No
  Sender: FDA-Public Use
  Company Number: US-WYE-H12225309

PATIENT
  Sex: Female
  Weight: 59.02 kg

DRUGS (3)
  1. PRISTIQ [Suspect]
     Indication: MOOD SWINGS
     Dosage: 50 MG EVERY 1 TOT
     Route: 048
     Dates: start: 20091117, end: 20091117
  2. PRISTIQ [Suspect]
     Indication: DEPRESSION
  3. TYLENOL [Concomitant]

REACTIONS (8)
  - FEELING HOT [None]
  - HYPERHIDROSIS [None]
  - MUSCULAR WEAKNESS [None]
  - MYDRIASIS [None]
  - PARAESTHESIA [None]
  - SYNCOPE [None]
  - TENSION HEADACHE [None]
  - TREMOR [None]
